FAERS Safety Report 4722880-2 (Version None)
Quarter: 2005Q3

REPORT INFORMATION
  Report Type: 
  Country: None (occurrence: None)
  Receive Date: 20050722
  Receipt Date: 20050704
  Transmission Date: 20060218
  Serious: Yes (Other)
  Sender: FDA-Public Use
  Company Number: PHBS2005ES09608

PATIENT
  Age: 45 Year
  Sex: Male

DRUGS (4)
  1. GLEEVEC [Suspect]
     Indication: CHRONIC MYELOID LEUKAEMIA
  2. BOI K [Concomitant]
  3. FOSFOMYCIN [Concomitant]
  4. TAVANIC [Concomitant]

REACTIONS (2)
  - HYPOTHYROIDISM [None]
  - URINARY TRACT INFECTION [None]
